FAERS Safety Report 25500382 (Version 1)
Quarter: 2025Q2

REPORT INFORMATION
  Report Type: Spontaneous
  Country: AU (occurrence: None)
  Receive Date: 20250629
  Receipt Date: 20250629
  Transmission Date: 20250716
  Serious: Yes (Disabling, Other)
  Sender: FDA-CTU
  Company Number: None

PATIENT
  Age: 50 Year
  Sex: Female
  Weight: 82 kg

DRUGS (10)
  1. TRULICITY [Suspect]
     Active Substance: DULAGLUTIDE
     Indication: Diabetes mellitus
     Route: 058
     Dates: start: 20220401, end: 20221130
  2. OZEMPIC [Suspect]
     Active Substance: SEMAGLUTIDE
  3. Diabex XS [Concomitant]
  4. PERINDOPRIL [Concomitant]
     Active Substance: PERINDOPRIL
  5. ZOLOFT [Concomitant]
     Active Substance: SERTRALINE HYDROCHLORIDE
  6. Clofen [Concomitant]
  7. LYRICA [Concomitant]
     Active Substance: PREGABALIN
  8. COENZYME Q10 [Concomitant]
     Active Substance: DIETARY SUPPLEMENT\UBIDECARENONE
  9. CALCIUM [Concomitant]
     Active Substance: CALCIUM
  10. Hair/Nail [Concomitant]

REACTIONS (11)
  - Eructation [None]
  - Abdominal pain upper [None]
  - Diarrhoea haemorrhagic [None]
  - Dysphagia [None]
  - Oropharyngeal pain [None]
  - Bone pain [None]
  - Vision blurred [None]
  - Throat tightness [None]
  - Hernia [None]
  - Irritable bowel syndrome [None]
  - Emotional distress [None]

NARRATIVE: CASE EVENT DATE: 20250626
